FAERS Safety Report 26194593 (Version 1)
Quarter: 2025Q4

REPORT INFORMATION
  Report Type: Other
  Country: EU (occurrence: EU)
  Receive Date: 20251224
  Receipt Date: 20251224
  Transmission Date: 20260117
  Serious: Yes (Hospitalization)
  Sender: ALVOGEN
  Company Number: EU-ALVOGEN-2025099219

PATIENT
  Age: 51 Year
  Sex: Female

DRUGS (6)
  1. TRAZODONE [Suspect]
     Active Substance: TRAZODONE HYDROCHLORIDE
     Indication: Sleep disorder
  2. TRAZODONE [Suspect]
     Active Substance: TRAZODONE HYDROCHLORIDE
     Indication: Sleep disorder
     Dosage: INCREASED
  3. MEDROXYPROGESTERONE ACETATE [Suspect]
     Active Substance: MEDROXYPROGESTERONE ACETATE
     Indication: Postmenopausal haemorrhage
     Dosage: RECEIVED ONE DEPOT.
  4. PREGABALIN [Suspect]
     Active Substance: PREGABALIN
     Indication: Vulvovaginal discomfort
  5. PREGABALIN [Suspect]
     Active Substance: PREGABALIN
     Indication: Vulvovaginal discomfort
     Dosage: INCREASED
  6. ESTRIOL [Suspect]
     Active Substance: ESTRIOL
     Indication: Vulvovaginal discomfort
     Dosage: 1 MG/G, THREE TIMES WEEKLY

REACTIONS (6)
  - Persistent genital arousal disorder [Recovered/Resolved]
  - Excessive masturbation [Recovered/Resolved]
  - Drug interaction [Unknown]
  - Impaired work ability [Recovered/Resolved]
  - Personal relationship issue [Recovered/Resolved]
  - Off label use [Unknown]
